FAERS Safety Report 25658541 (Version 1)
Quarter: 2025Q3

REPORT INFORMATION
  Report Type: Report from Study
  Country: US (occurrence: US)
  Receive Date: 20250808
  Receipt Date: 20250808
  Transmission Date: 20251020
  Serious: Yes (Hospitalization)
  Sender: ROCHE
  Company Number: US-ROCHE-10000352357

PATIENT
  Age: 77 Year
  Sex: Female

DRUGS (2)
  1. PULMOZYME [Suspect]
     Active Substance: DORNASE ALFA
     Indication: Bronchiectasis
     Dosage: INHALE THE CONTENTS OF ONE VIAL VIA NEBULIZATION TWICE DAILY
     Route: 055
  2. PULMOZYME [Suspect]
     Active Substance: DORNASE ALFA
     Indication: Scoliosis

REACTIONS (3)
  - Bacterial infection [Unknown]
  - Off label use [Unknown]
  - Viral infection [Unknown]
